FAERS Safety Report 4263895-0 (Version None)
Quarter: 2004Q1

REPORT INFORMATION
  Report Type: 
  Country: None (occurrence: None)
  Receive Date: 20040102
  Receipt Date: 20030930
  Transmission Date: 20041129
  Serious: Yes (Death)
  Sender: FDA-Public Use
  Company Number: A01200304618

PATIENT
  Age: 50 Year
  Sex: Male

DRUGS (2)
  1. PLAVIX [Suspect]
     Indication: DRUG HYPERSENSITIVITY
     Dosage: 75 MG OD ORAL
     Route: 048
  2. PERSANTIN (DIPYRIDAMOLE) [Concomitant]

REACTIONS (5)
  - ACUTE RESPIRATORY DISTRESS SYNDROME [None]
  - OPERATIVE HAEMORRHAGE [None]
  - PLEURAL EFFUSION [None]
  - PNEUMONIA [None]
  - POST PROCEDURAL HAEMORRHAGE [None]
